FAERS Safety Report 9402870 (Version 1)
Quarter: 2013Q3

REPORT INFORMATION
  Report Type: Spontaneous
  Country: US (occurrence: None)
  Receive Date: 20130715
  Receipt Date: 20130715
  Transmission Date: 20140515
  Serious: Yes (Other)
  Sender: FDA-Public Use
  Company Number: None

PATIENT
  Age: 85 Year
  Sex: Female

DRUGS (1)
  1. FORTEO [Suspect]
     Indication: OSTEOPENIA
     Route: 058
     Dates: start: 20130508, end: 201307

REACTIONS (3)
  - Nausea [None]
  - Trigeminal neuralgia [None]
  - Disease recurrence [None]
